FAERS Safety Report 10057570 (Version 4)
Quarter: 2014Q2

REPORT INFORMATION
  Report Type: Report from Study
  Country: FR (occurrence: FR)
  Receive Date: 20140404
  Receipt Date: 20140616
  Transmission Date: 20141212
  Serious: Yes (Hospitalization)
  Sender: FDA-Public Use
  Company Number: FR-ROCHE-1373747

PATIENT
  Age: 89 Year
  Sex: Female
  Weight: 64 kg

DRUGS (11)
  1. VISMODEGIB [Suspect]
     Indication: BASAL CELL CARCINOMA
     Dosage: DATE OF LAST DOSE PRIOR TO SERIOUS ADVERSE EVENT: 04/OCT/2013
     Route: 048
     Dates: start: 20130411
  2. LACTULOSE [Concomitant]
     Indication: CONSTIPATION
     Route: 065
     Dates: start: 20130412, end: 20130413
  3. LACTULOSE [Concomitant]
     Dosage: WHEN REQUIRED.
     Route: 065
     Dates: start: 20130414
  4. DOLIPRANE [Concomitant]
     Indication: CHOLECYSTITIS ACUTE
     Route: 065
     Dates: start: 20130505
  5. DOLIPRANE [Concomitant]
     Route: 065
     Dates: start: 20130618, end: 20130628
  6. AUGMENTIN [Concomitant]
     Indication: CHOLECYSTITIS ACUTE
     Route: 065
     Dates: start: 20130614, end: 20130620
  7. CONTRAMAL [Concomitant]
     Indication: CHOLECYSTITIS ACUTE
     Dosage: CONTRAMAL 50.
     Route: 065
     Dates: start: 20130614, end: 20130618
  8. THIOCOLCHICOSIDE [Concomitant]
     Indication: CHOLECYSTITIS ACUTE
     Route: 065
     Dates: start: 20130618, end: 20130628
  9. TOPALGIC (FRANCE) [Concomitant]
     Indication: CHOLECYSTITIS ACUTE
     Route: 065
     Dates: start: 20130618, end: 20130628
  10. PARACETAMOL [Concomitant]
     Indication: MUSCULOSKELETAL PAIN
     Route: 065
     Dates: start: 20130912
  11. ISUPREL [Concomitant]
     Indication: ATRIOVENTRICULAR BLOCK COMPLETE
     Route: 065
     Dates: start: 20131231, end: 20140103

REACTIONS (1)
  - Duodenal ulcer [Recovered/Resolved]
